FAERS Safety Report 6613283-4 (Version None)
Quarter: 2010Q1

REPORT INFORMATION
  Report Type: 
  Country: None (occurrence: None)
  Receive Date: 20100304
  Receipt Date: 20100218
  Transmission Date: 20100710
  Serious: Yes (Hospitalization)
  Sender: FDA-Public Use
  Company Number: PHHY2010DE10135

PATIENT
  Sex: Female
  Weight: 93 kg

DRUGS (11)
  1. CARBAMAZEPINE [Suspect]
     Dosage: 450 MG/DAY
     Route: 048
     Dates: start: 20090731, end: 20090731
  2. CARBAMAZEPINE [Suspect]
     Dosage: 900 MG/DAY
     Route: 048
     Dates: start: 20090801, end: 20090801
  3. CARBAMAZEPINE [Suspect]
     Dosage: 850 MG/DAY
     Route: 048
     Dates: start: 20090802, end: 20090802
  4. CARBAMAZEPINE [Suspect]
     Dosage: 600 MG/DAY
     Route: 048
     Dates: start: 20090803, end: 20090804
  5. CARBAMAZEPINE [Suspect]
     Dosage: 400 MG/DAY
     Route: 048
     Dates: start: 20090805, end: 20090805
  6. CARBAMAZEPINE [Suspect]
     Dosage: 200 MG/DAY
     Route: 048
     Dates: start: 20090806, end: 20090806
  7. QUINAPRIL [Suspect]
     Dosage: 20 MG/DAY
  8. METOPROLOL TARTRATE [Concomitant]
     Dosage: 150 MG/DAY
     Route: 048
  9. GLIMEPIRIDE [Concomitant]
     Dosage: 02 MG/DAY
     Route: 048
  10. METFORMIN HYDROCHLORIDE [Concomitant]
     Dosage: 2000 MG/DAY
     Route: 048
  11. SOLIAN [Concomitant]
     Dosage: 100 MG/DAY
     Route: 048

REACTIONS (8)
  - BLOOD LACTATE DEHYDROGENASE INCREASED [None]
  - DELIRIUM [None]
  - DIZZINESS [None]
  - DRUG INTERACTION [None]
  - DYSPNOEA [None]
  - FIBRIN D DIMER INCREASED [None]
  - HYPONATRAEMIA [None]
  - OEDEMA PERIPHERAL [None]
